FAERS Safety Report 10191692 (Version 2)
Quarter: 2014Q2

REPORT INFORMATION
  Report Type: Report from Study
  Country: US (occurrence: US)
  Receive Date: 20140523
  Receipt Date: 20140630
  Transmission Date: 20141212
  Serious: Yes (Hospitalization)
  Sender: FDA-Public Use
  Company Number: US-SA-2014SA063828

PATIENT
  Age: 74 Year
  Sex: Female
  Weight: 106 kg

DRUGS (2)
  1. LANTUS SOLOSTAR [Suspect]
     Indication: PRODUCT USED FOR UNKNOWN INDICATION
     Route: 065
  2. SOLOSTAR [Concomitant]

REACTIONS (3)
  - Spinal fracture [Recovering/Resolving]
  - Back pain [Recovering/Resolving]
  - Urinary tract infection [Recovered/Resolved]
